FAERS Safety Report 8269165-8 (Version None)
Quarter: 2012Q2

REPORT INFORMATION
  Report Type: 
  Country: None (occurrence: None)
  Receive Date: 20120409
  Receipt Date: 20120330
  Transmission Date: 20120825
  Serious: Yes (Hospitalization)
  Sender: FDA-Public Use
  Company Number: NL-MEDIMMUNE-MEDI-0015316

PATIENT
  Sex: Female

DRUGS (2)
  1. SYNAGIS [Suspect]
     Indication: PREMATURE BABY
     Route: 030
     Dates: start: 20120301, end: 20120301
  2. SYNAGIS [Suspect]
     Route: 030
     Dates: start: 20120320, end: 20120320

REACTIONS (5)
  - INFANTILE SPITTING UP [None]
  - FATIGUE [None]
  - COUGH [None]
  - RESPIRATORY SYNCYTIAL VIRUS TEST POSITIVE [None]
  - FLOPPY INFANT [None]
